FAERS Safety Report 6347813-7 (Version None)
Quarter: 2009Q3

REPORT INFORMATION
  Report Type: 
  Country: None (occurrence: None)
  Receive Date: 20090910
  Receipt Date: 20090901
  Transmission Date: 20100115
  Serious: Yes (Hospitalization)
  Sender: FDA-Public Use
  Company Number: B0584468A

PATIENT
  Sex: Female
  Weight: 57 kg

DRUGS (7)
  1. VALTREX [Suspect]
     Indication: HERPES ZOSTER
     Dosage: 1000MG THREE TIMES PER DAY
     Route: 048
     Dates: start: 20090706, end: 20090710
  2. VOLTAREN [Suspect]
     Indication: PAIN
     Route: 048
     Dates: start: 20090706, end: 20090710
  3. CRESTOR [Concomitant]
     Dosage: 2.5MG PER DAY
     Route: 048
  4. UNKNOWN DRUG [Concomitant]
     Dosage: 10MG PER DAY
     Route: 048
  5. ALLOZYM [Concomitant]
     Dosage: 100MG PER DAY
     Route: 048
  6. NIFELANTERN CR [Concomitant]
     Dosage: 40MG PER DAY
     Route: 048
  7. PURSENNID [Concomitant]
     Dosage: 24MG PER DAY
     Route: 048

REACTIONS (5)
  - DECREASED APPETITE [None]
  - HOT FLUSH [None]
  - OEDEMA PERIPHERAL [None]
  - RENAL IMPAIRMENT [None]
  - URINE OUTPUT DECREASED [None]
